FAERS Safety Report 7602579-5 (Version None)
Quarter: 2011Q3

REPORT INFORMATION
  Report Type: 
  Country: None (occurrence: None)
  Receive Date: 20110712
  Receipt Date: 20110630
  Transmission Date: 20111222
  Serious: Yes (Hospitalization)
  Sender: FDA-Public Use
  Company Number: US-US-EMD SERONO, INC.-7068163

PATIENT
  Age: 30 Year
  Sex: Female

DRUGS (4)
  1. GONADOTROPINS [Concomitant]
     Indication: INFERTILITY FEMALE
  2. IRON SULFATETHIAMIN COMPOUND TAB [Concomitant]
     Indication: ANAEMIA
  3. CHORIOGONADOTROPIN ALFA [Suspect]
     Indication: INFERTILITY FEMALE
  4. HYDROCODONE BITARTRATE [Concomitant]
     Indication: ANALGESIC THERAPY

REACTIONS (3)
  - OVARIAN HYPERSTIMULATION SYNDROME [None]
  - RUPTURED ECTOPIC PREGNANCY [None]
  - MULTIPLE PREGNANCY [None]
